FAERS Safety Report 5105198-8 (Version None)
Quarter: 2006Q3

REPORT INFORMATION
  Report Type: 
  Country: None (occurrence: None)
  Receive Date: 20060911
  Receipt Date: 20060829
  Transmission Date: 20061208
  Serious: Yes (Other)
  Sender: FDA-Public Use
  Company Number: 2006106207

PATIENT
  Age: 53 Year
  Sex: Female
  Weight: 50.8029 kg

DRUGS (3)
  1. NEURONTIN [Suspect]
     Indication: NEURALGIA
     Dosage: 300 MG (300 MG, 1 IN 1 D)
     Dates: start: 20060822
  2. LYRICA [Suspect]
     Indication: NEURALGIA
     Dosage: 50 MG (50 MG,1 IN 1 D)
     Dates: start: 20060826, end: 20060827
  3. TRIAMTERENE AND HYDROCHLOROTHIAZIDE [Concomitant]

REACTIONS (6)
  - FEELING DRUNK [None]
  - HYPERSOMNIA [None]
  - IMPAIRED DRIVING ABILITY [None]
  - PAIN [None]
  - VERTIGO [None]
  - WRONG TECHNIQUE IN DRUG USAGE PROCESS [None]
